FAERS Safety Report 7574806-4 (Version None)
Quarter: 2011Q2

REPORT INFORMATION
  Report Type: 
  Country: None (occurrence: None)
  Receive Date: 20110627
  Receipt Date: 20110607
  Transmission Date: 20111010
  Serious: Yes (Other)
  Sender: FDA-Public Use
  Company Number: GB-BAYER-2011-045875

PATIENT
  Age: 65 Year
  Sex: Male

DRUGS (2)
  1. SORAFENIB (RAF KINASE INHIBITOR) [Suspect]
     Indication: RENAL CELL CARCINOMA
     Dosage: 400 MG QD, SORAFANIB TREATMENT
     Route: 048
     Dates: start: 20080812, end: 20091118
  2. SORAFENIB (RAF KINASE INHIBITOR) [Suspect]
     Dosage: PLACEBO TREATMENT
     Route: 048
     Dates: start: 20091119, end: 20110404

REACTIONS (1)
  - GASTROINTESTINAL STROMAL TUMOUR [None]
